FAERS Safety Report 16951746 (Version 1)
Quarter: 2019Q4

REPORT INFORMATION
  Report Type: Report from Study
  Country: DE (occurrence: DE)
  Receive Date: 20191023
  Receipt Date: 20191023
  Transmission Date: 20200122
  Serious: Yes (Hospitalization, Other)
  Sender: FDA-Public Use
  Company Number: DE-BRISTOL-MYERS SQUIBB COMPANY-BMS-2019-097790

PATIENT
  Age: 59 Year
  Sex: Male
  Weight: 85 kg

DRUGS (12)
  1. PANTOPRAZOL [PANTOPRAZOLE SODIUM SESQUIHYDRATE] [Concomitant]
     Indication: PROPHYLAXIS
     Dosage: UNK
     Route: 065
     Dates: start: 201806
  2. NIVOLUMAB [Suspect]
     Active Substance: NIVOLUMAB
     Indication: NON-SMALL CELL LUNG CANCER
     Dosage: 240 MILLIGRAM
     Route: 065
     Dates: start: 20190909, end: 20190923
  3. AMITRIPTYLINE [Concomitant]
     Active Substance: AMITRIPTYLINE
     Indication: PRODUCT USED FOR UNKNOWN INDICATION
     Dosage: UNK
     Route: 065
  4. ENOXAPARIN SODIUM. [Suspect]
     Active Substance: ENOXAPARIN SODIUM
     Indication: ILL-DEFINED DISORDER
     Dosage: UNK
     Route: 065
     Dates: start: 20180615, end: 20190923
  5. ZOPICLONE [Concomitant]
     Active Substance: ZOPICLONE
     Indication: ILL-DEFINED DISORDER
     Dosage: UNK
     Route: 065
     Dates: start: 201801
  6. CANDESARTAN. [Concomitant]
     Active Substance: CANDESARTAN
     Indication: ILL-DEFINED DISORDER
     Dosage: UNK
     Route: 065
     Dates: start: 199906
  7. METOHEXAL [METOPROLOL SUCCINATE] [Concomitant]
     Active Substance: METOPROLOL SUCCINATE
     Indication: ILL-DEFINED DISORDER
     Dosage: UNK
     Route: 065
     Dates: start: 199906
  8. HCT [Concomitant]
     Active Substance: HYDROCHLOROTHIAZIDE
     Indication: ILL-DEFINED DISORDER
     Dosage: UNK
     Route: 065
     Dates: start: 199906
  9. ATORVASTATIN [Concomitant]
     Active Substance: ATORVASTATIN
     Indication: ILL-DEFINED DISORDER
     Dosage: UNK
     Route: 065
     Dates: start: 199906
  10. ASPIRIN. [Concomitant]
     Active Substance: ASPIRIN
     Indication: ILL-DEFINED DISORDER
     Dosage: UNK
     Route: 065
     Dates: start: 20180615
  11. JODID [Concomitant]
     Active Substance: IODINE
     Indication: ILL-DEFINED DISORDER
     Dosage: UNK
     Route: 065
     Dates: start: 201903
  12. RIVAROXABAN [Suspect]
     Active Substance: RIVAROXABAN
     Indication: ILL-DEFINED DISORDER
     Dosage: UNK
     Route: 065
     Dates: start: 20190923, end: 20191008

REACTIONS (2)
  - Gastric haemorrhage [Not Recovered/Not Resolved]
  - Anaemia [Recovered/Resolved]

NARRATIVE: CASE EVENT DATE: 20191007
